FAERS Safety Report 4758761-8 (Version None)
Quarter: 2005Q3

REPORT INFORMATION
  Report Type: 
  Country: None (occurrence: None)
  Receive Date: 20050901
  Receipt Date: 20050822
  Transmission Date: 20060218
  Serious: Yes (Other)
  Sender: FDA-Public Use
  Company Number: 2005GB01624

PATIENT
  Age: 66 Year
  Sex: Female
  Weight: 68 kg

DRUGS (1)
  1. CRESTOR [Suspect]
     Indication: HYPERCHOLESTEROLAEMIA
     Route: 048
     Dates: start: 20041215, end: 20050727

REACTIONS (1)
  - LOSS OF LIBIDO [None]
